FAERS Safety Report 20688646 (Version 2)
Quarter: 2022Q2

REPORT INFORMATION
  Report Type: Report from Study
  Country: US (occurrence: US)
  Receive Date: 20220408
  Receipt Date: 20220504
  Transmission Date: 20220721
  Serious: Yes (Death, Hospitalization, Other)
  Sender: FDA-Public Use
  Company Number: US-NOVARTISPH-NVSC2022US078657

PATIENT
  Age: 93 Year
  Sex: Female

DRUGS (1)
  1. PIQRAY [Suspect]
     Active Substance: ALPELISIB
     Indication: Breast cancer
     Dosage: 200 MG, QD
     Route: 048

REACTIONS (9)
  - Death [Fatal]
  - Confusional state [Unknown]
  - Lethargy [Unknown]
  - Hallucination [Unknown]
  - Illness [Unknown]
  - Quality of life decreased [Unknown]
  - Loss of personal independence in daily activities [Unknown]
  - Blood glucose decreased [Unknown]
  - Nausea [Unknown]

NARRATIVE: CASE EVENT DATE: 20220412
